FAERS Safety Report 9125834 (Version 1)
Quarter: 2013Q1

REPORT INFORMATION
  Report Type: Spontaneous
  Country: US (occurrence: US)
  Receive Date: 20130121
  Receipt Date: 20130121
  Transmission Date: 20140127
  Serious: No
  Sender: FDA-Public Use
  Company Number: US-009507513-1301USA009034

PATIENT
  Age: 16 Year
  Sex: Female

DRUGS (3)
  1. IMPLANON [Suspect]
     Indication: CONTRACEPTION
     Dosage: UNK
     Route: 059
     Dates: start: 201205
  2. CONCERTA [Concomitant]
  3. ADDERALL TABLETS [Concomitant]

REACTIONS (2)
  - Mood swings [Not Recovered/Not Resolved]
  - Disturbance in attention [Not Recovered/Not Resolved]
